FAERS Safety Report 21897976 (Version 1)
Quarter: 2023Q1

REPORT INFORMATION
  Report Type: Spontaneous
  Country: US (occurrence: None)
  Receive Date: 20230120
  Receipt Date: 20230120
  Transmission Date: 20230417
  Serious: Yes (Life-Threatening, Hospitalization, Disabling)
  Sender: FDA-Public Use
  Company Number: None

PATIENT
  Age: 44 Year
  Sex: Female

DRUGS (1)
  1. LORAZEPAM [Suspect]
     Active Substance: LORAZEPAM
     Indication: Anxiety

REACTIONS (8)
  - Withdrawal syndrome [None]
  - Illness [None]
  - Insomnia [None]
  - Hypophagia [None]
  - Impaired work ability [None]
  - Bedridden [None]
  - Malaise [None]
  - Pain [None]

NARRATIVE: CASE EVENT DATE: 20220926
